FAERS Safety Report 21342642 (Version 2)
Quarter: 2022Q4

REPORT INFORMATION
  Report Type: Other
  Country: JP (occurrence: JP)
  Receive Date: 20220916
  Receipt Date: 20221228
  Transmission Date: 20230113
  Serious: Yes (Hospitalization, Other)
  Sender: FDA-Public Use
  Company Number: JP-CHUGAI-2022029574

PATIENT
  Age: 65 Year
  Sex: Male
  Weight: 52 kg

DRUGS (5)
  1. TECENTRIQ [Suspect]
     Active Substance: ATEZOLIZUMAB
     Indication: Lung adenocarcinoma
     Route: 041
     Dates: start: 20200123, end: 20200219
  2. CARBOPLATIN [Suspect]
     Active Substance: CARBOPLATIN
     Indication: Lung adenocarcinoma
     Dosage: 720 MILLIGRAM, ONCE/3WEEKS
     Route: 041
     Dates: start: 20200129, end: 20200219
  3. PACLITAXEL [Suspect]
     Active Substance: PACLITAXEL
     Indication: Lung adenocarcinoma
     Dosage: 165 MILLIGRAM, ONCE/WEEK
     Route: 041
     Dates: start: 20200123, end: 20200304
  4. CARBOPLATIN [Concomitant]
     Active Substance: CARBOPLATIN
     Indication: Lung adenocarcinoma
     Route: 041
  5. PEMETREXED [Concomitant]
     Active Substance: PEMETREXED
     Indication: Lung adenocarcinoma
     Route: 041

REACTIONS (8)
  - Atypical mycobacterial infection [Not Recovered/Not Resolved]
  - Hepatitis [Recovered/Resolved]
  - Encephalitis [Recovering/Resolving]
  - Pancreatitis [Recovered/Resolved]
  - Adrenal insufficiency [Recovering/Resolving]
  - Sinusitis [Unknown]
  - Myositis [Unknown]
  - Polyneuropathy [Unknown]

NARRATIVE: CASE EVENT DATE: 20200330
